FAERS Safety Report 5947864-8 (Version None)
Quarter: 2008Q4

REPORT INFORMATION
  Report Type: 
  Country: None (occurrence: None)
  Receive Date: 20081111
  Receipt Date: 20081029
  Transmission Date: 20090506
  Serious: Yes (Hospitalization)
  Sender: FDA-Public Use
  Company Number: US-BAYER-200830521NA

PATIENT
  Age: 52 Year
  Sex: Male
  Weight: 86 kg

DRUGS (19)
  1. CAMPATH [Suspect]
     Indication: CHRONIC LYMPHOCYTIC LEUKAEMIA
     Dosage: TOTAL DAILY DOSE: 30 MG
     Route: 058
     Dates: start: 20080630, end: 20080801
  2. CAMPATH [Suspect]
     Dosage: TOTAL DAILY DOSE: 30 MG
     Route: 058
     Dates: start: 20081024
  3. CAMPATH [Suspect]
     Dosage: TOTAL DAILY DOSE: 30 MG
     Route: 058
     Dates: start: 20080905, end: 20080915
  4. BACTRIM DS [Concomitant]
     Indication: PROPHYLAXIS
     Route: 048
     Dates: start: 20080630, end: 20080818
  5. BACTRIM DS [Concomitant]
     Route: 048
     Dates: start: 20080818, end: 20080819
  6. VALACYCLOVIR HCL [Concomitant]
     Dates: start: 20080630
  7. ACETAMINOPHEN [Concomitant]
     Indication: PYREXIA
     Route: 048
     Dates: start: 20080818
  8. ACETAMINOPHEN [Concomitant]
     Dates: start: 20080630
  9. ACYCLOVIR [Concomitant]
     Dates: start: 20080818
  10. DAPSONE [Concomitant]
     Indication: PROPHYLAXIS
     Route: 048
     Dates: start: 20080819
  11. FERROUS SULFATE [Concomitant]
     Indication: ANAEMIA
     Route: 048
     Dates: start: 20080823
  12. HYDROCODONE BITARTRATE + ACETAMINOPHEN [Concomitant]
     Indication: PAIN
     Route: 048
     Dates: start: 20080823
  13. VENOGLOBULIN [Concomitant]
     Indication: THERAPEUTIC PROCEDURE
     Route: 042
     Dates: start: 20080821, end: 20080825
  14. DOXIN [Concomitant]
  15. VICODIN [Concomitant]
  16. KENALOG [Concomitant]
     Route: 061
  17. NEXIUM [Concomitant]
     Dates: start: 20080823, end: 20080827
  18. PROCRIT [Concomitant]
     Dates: start: 20080822, end: 20080822
  19. RED BLOOD CELLS [Concomitant]
     Dates: start: 20080825, end: 20080825

REACTIONS (2)
  - LEUKOCYTOCLASTIC VASCULITIS [None]
  - VENOUS THROMBOSIS LIMB [None]
